FAERS Safety Report 4278173-3 (Version None)
Quarter: 2004Q1

REPORT INFORMATION
  Report Type: 
  Country: None (occurrence: None)
  Receive Date: 20040121
  Receipt Date: 20040109
  Transmission Date: 20041129
  Serious: Yes (Hospitalization)
  Sender: FDA-Public Use
  Company Number: 04P-098-0246299-00

PATIENT
  Age: 51 Year
  Sex: Female

DRUGS (11)
  1. VALPROATE SODIUM [Suspect]
     Indication: DRUG RESISTANCE
     Dosage: 3600 MG, 1 D
  2. VALPROATE SODIUM [Suspect]
     Indication: PARTIAL SEIZURES
     Dosage: 3600 MG, 1 D
  3. TOPIRAMATE [Suspect]
     Indication: DRUG RESISTANCE
     Dosage: , 1 D
     Dates: start: 20020601, end: 20021001
  4. TOPIRAMATE [Suspect]
     Indication: PARTIAL SEIZURES
     Dosage: , 1 D
     Dates: start: 20020601, end: 20021001
  5. TOPIRAMATE [Suspect]
     Indication: DRUG RESISTANCE
     Dosage: , 1 D
     Dates: start: 20021001
  6. TOPIRAMATE [Suspect]
     Indication: PARTIAL SEIZURES
     Dosage: , 1 D
     Dates: start: 20021001
  7. PHENYTOIN [Concomitant]
  8. CITALOPRAM [Concomitant]
  9. OMEPRAZOLE [Concomitant]
  10. HEPARIN-FRACTION, SODIUM SALT [Concomitant]
  11. GABAPENTIN [Concomitant]

REACTIONS (10)
  - ANTICONVULSANT DRUG LEVEL INCREASED [None]
  - CONTUSION [None]
  - CONVULSION [None]
  - DRUG INTERACTION [None]
  - ELECTROENCEPHALOGRAM ABNORMAL [None]
  - GINGIVAL HYPERPLASIA [None]
  - HEMIPARESIS [None]
  - HEPATIC ENCEPHALOPATHY [None]
  - HEPATIC FAILURE [None]
  - SOMNOLENCE [None]
